FAERS Safety Report 25377114 (Version 1)
Quarter: 2025Q2

REPORT INFORMATION
  Report Type: Spontaneous
  Country: RO (occurrence: RO)
  Receive Date: 20250530
  Receipt Date: 20250530
  Transmission Date: 20250717
  Serious: Yes (Other)
  Sender: RANBAXY
  Company Number: RO-SUN PHARMACEUTICAL INDUSTRIES LTD-2025RR-509633

PATIENT
  Age: 19 Year
  Sex: Male

DRUGS (17)
  1. SERTRALINE [Suspect]
     Active Substance: SERTRALINE HYDROCHLORIDE
     Indication: Persistent depressive disorder
     Route: 065
  2. SERTRALINE [Suspect]
     Active Substance: SERTRALINE HYDROCHLORIDE
     Indication: Obsessive-compulsive disorder
     Dosage: 50 MILLIGRAM, DAILY
     Route: 065
  3. SERTRALINE [Suspect]
     Active Substance: SERTRALINE HYDROCHLORIDE
     Indication: Generalised anxiety disorder
     Dosage: 100 MILLIGRAM, DAILY
     Route: 065
  4. PREGABALIN [Suspect]
     Active Substance: PREGABALIN
     Indication: Depression
     Dosage: 75 MILLIGRAM, DAILY
     Route: 065
  5. AMISULPRIDE [Suspect]
     Active Substance: AMISULPRIDE
     Indication: Obsessive-compulsive disorder
     Dosage: 200 MILLIGRAM, DAILY
     Route: 065
  6. AMISULPRIDE [Suspect]
     Active Substance: AMISULPRIDE
     Indication: Depression
     Dosage: 600 MILLIGRAM, DAILY
     Route: 065
  7. AMISULPRIDE [Suspect]
     Active Substance: AMISULPRIDE
     Indication: Psychotic disorder
  8. ESCITALOPRAM [Suspect]
     Active Substance: ESCITALOPRAM OXALATE
     Indication: Depression
     Dosage: 10 MILLIGRAM, DAILY
     Route: 065
  9. TRIHEXYPHENIDYL [Suspect]
     Active Substance: TRIHEXYPHENIDYL
     Indication: Depression
     Dosage: 2 MILLIGRAM, DAILY
     Route: 065
  10. CARIPRAZINE [Suspect]
     Active Substance: CARIPRAZINE
     Indication: Depression
     Dosage: 3 MILLIGRAM, DAILY
     Route: 065
  11. CARIPRAZINE [Suspect]
     Active Substance: CARIPRAZINE
     Dosage: 6 UNK
     Route: 065
  12. VORTIOXETINE [Suspect]
     Active Substance: VORTIOXETINE
     Indication: Obsessive-compulsive disorder
     Dosage: 10 MILLIGRAM, DAILY
     Route: 065
  13. VORTIOXETINE [Suspect]
     Active Substance: VORTIOXETINE
     Indication: Depression
     Dosage: 20 MILLIGRAM, DAILY
     Route: 065
  14. VORTIOXETINE [Suspect]
     Active Substance: VORTIOXETINE
     Indication: Psychotic disorder
  15. CLOMIPRAMINE [Suspect]
     Active Substance: CLOMIPRAMINE
     Indication: Depression
     Dosage: 25 MILLIGRAM, DAILY
     Route: 065
  16. CLOMIPRAMINE [Suspect]
     Active Substance: CLOMIPRAMINE
     Dosage: 50 MILLIGRAM, DAILY
     Route: 065
  17. PALIPERIDONE [Suspect]
     Active Substance: PALIPERIDONE
     Indication: Depression
     Dosage: 6 MILLIGRAM, DAILY
     Route: 065

REACTIONS (3)
  - Condition aggravated [Recovering/Resolving]
  - Therapeutic product effect incomplete [Recovering/Resolving]
  - Drug ineffective [Recovering/Resolving]
